FAERS Safety Report 19956911 (Version 1)
Quarter: 2021Q4

REPORT INFORMATION
  Report Type: Spontaneous
  Country: CA (occurrence: CA)
  Receive Date: 20211014
  Receipt Date: 20211014
  Transmission Date: 20220304
  Serious: Yes (Hospitalization, Other)
  Sender: FDA-Public Use
  Company Number: CA-CIPHER-2021-CA-001853

PATIENT
  Age: 77 Year
  Sex: Female

DRUGS (2)
  1. TRAMADOL HYDROCHLORIDE [Suspect]
     Active Substance: TRAMADOL HYDROCHLORIDE
     Indication: Back pain
     Dosage: UNKNOWN DOSE
     Route: 065
  2. OLUMIANT [Suspect]
     Active Substance: BARICITINIB
     Indication: Rheumatoid arthritis
     Route: 048

REACTIONS (7)
  - Constipation [Not Recovered/Not Resolved]
  - Intervertebral disc degeneration [Not Recovered/Not Resolved]
  - Osteoporosis [Not Recovered/Not Resolved]
  - Spinal compression fracture [Not Recovered/Not Resolved]
  - Urinary tract infection [Not Recovered/Not Resolved]
  - Vertebral osteophyte [Not Recovered/Not Resolved]
  - Vomiting [Not Recovered/Not Resolved]
